APPROVED DRUG PRODUCT: OXAZEPAM
Active Ingredient: OXAZEPAM
Strength: 10MG
Dosage Form/Route: CAPSULE;ORAL
Application: A072253 | Product #002 | TE Code: AB
Applicant: ACTAVIS ELIZABETH LLC
Approved: Apr 14, 1988 | RLD: No | RS: No | Type: RX